FAERS Safety Report 4782866-9 (Version None)
Quarter: 2005Q3

REPORT INFORMATION
  Report Type: 
  Country: None (occurrence: None)
  Receive Date: 20050927
  Receipt Date: 20050914
  Transmission Date: 20060218
  Serious: Yes (Disabling)
  Sender: FDA-Public Use
  Company Number: 2005109290

PATIENT
  Age: 49 Year
  Sex: Female
  Weight: 86.1834 kg

DRUGS (3)
  1. GEODON [Suspect]
     Indication: BIPOLAR II DISORDER
     Dosage: 80 MG (80 MG , 1 IN 1 D), ORAL
     Route: 048
     Dates: start: 20050203, end: 20050701
  2. PROZAC (FLUOXETINE NYDROCHLORIDE) [Concomitant]
  3. FLUOXETINE [Concomitant]

REACTIONS (11)
  - ANXIETY [None]
  - DEPRESSION [None]
  - DIARRHOEA [None]
  - DISTURBANCE IN ATTENTION [None]
  - FATIGUE [None]
  - IMPAIRED WORK ABILITY [None]
  - LETHARGY [None]
  - MOOD ALTERED [None]
  - NAUSEA [None]
  - SEDATION [None]
  - SLEEP DISORDER [None]
